FAERS Safety Report 4897244-1 (Version None)
Quarter: 2005Q4

REPORT INFORMATION
  Report Type: 
  Country: None (occurrence: None)
  Receive Date: 20051223
  Receipt Date: 20050921
  Transmission Date: 20060501
  Serious: No
  Sender: FDA-Public Use
  Company Number: 05P-163-0311572-00

PATIENT
  Age: 55 Year
  Sex: Female
  Weight: 68.0396 kg

DRUGS (9)
  1. HUMIRA [Suspect]
     Indication: PSORIATIC ARTHROPATHY
     Dosage: 40 MG, 1 IN 2 WK, SUBCUTANEOUS
     Route: 058
     Dates: start: 20050921
  2. METHOTREXATE [Concomitant]
  3. FOLIC ACID [Concomitant]
  4. CALCIUM  CARBONATE [Concomitant]
  5. MULTIVITAMIN [Concomitant]
  6. LEVOTHYROXINE SODIUM [Concomitant]
  7. ALPRAZOLAM [Concomitant]
  8. CYMBALTA [Concomitant]
  9. CORTISONE ACETATE TAB [Concomitant]

REACTIONS (2)
  - INJECTION SITE IRRITATION [None]
  - INJECTION SITE PAIN [None]
